FAERS Safety Report 5113796-0 (Version None)
Quarter: 2006Q3

REPORT INFORMATION
  Report Type: 
  Country: None (occurrence: None)
  Receive Date: 20060921
  Receipt Date: 20060921
  Transmission Date: 20061208
  Serious: Yes (Hospitalization)
  Sender: FDA-Public Use
  Company Number: None

PATIENT
  Age: 4 Year
  Sex: Female
  Weight: 31 kg

DRUGS (1)
  1. ISONIAZID [Suspect]
     Indication: TUBERCULOSIS SKIN TEST POSITIVE
     Dosage: 300 MG QD PO
     Route: 048
     Dates: start: 20040709, end: 20040713

REACTIONS (4)
  - ABDOMINAL PAIN UPPER [None]
  - NAUSEA [None]
  - TREATMENT NONCOMPLIANCE [None]
  - VOMITING [None]
